FAERS Safety Report 7903836-5 (Version None)
Quarter: 2011Q4

REPORT INFORMATION
  Report Type: 
  Country: None (occurrence: None)
  Receive Date: 20111109
  Receipt Date: 20111107
  Transmission Date: 20120403
  Serious: Yes (Other)
  Sender: FDA-Public Use
  Company Number: US-PFIZER INC-2011272854

PATIENT
  Sex: Female
  Weight: 72.6 kg

DRUGS (1)
  1. NEURONTIN [Suspect]
     Indication: HERPES ZOSTER
     Dosage: 900 MG, 2X/DAY
     Route: 048
     Dates: start: 20080101

REACTIONS (2)
  - HEART RATE IRREGULAR [None]
  - STENT PLACEMENT [None]
